FAERS Safety Report 5478408-5 (Version None)
Quarter: 2007Q4

REPORT INFORMATION
  Report Type: 
  Country: None (occurrence: None)
  Receive Date: 20071005
  Receipt Date: 20070925
  Transmission Date: 20080405
  Serious: Yes (Other)
  Sender: FDA-Public Use
  Company Number: US-GENENTECH-245311

PATIENT
  Sex: Male
  Weight: 49.1 kg

DRUGS (8)
  1. SOMATROPIN [Suspect]
     Indication: RENAL FAILURE CHRONIC
     Dosage: 2.2 MG, 7/WEEK
     Route: 058
     Dates: start: 20050413, end: 20070101
  2. BICARBONATE [Concomitant]
     Indication: RENAL DISORDER
  3. MAGNESIUM SULFATE [Concomitant]
     Indication: RENAL DISORDER
  4. CELLCEPT [Concomitant]
     Indication: DRUG USE FOR UNKNOWN INDICATION
     Dosage: 500 MG, BID
     Route: 048
     Dates: start: 19920510
  5. NEORAL [Concomitant]
     Indication: DRUG USE FOR UNKNOWN INDICATION
     Dosage: 125 MG, BID
     Route: 048
     Dates: start: 19920510
  6. NEXIUM [Concomitant]
     Indication: DRUG USE FOR UNKNOWN INDICATION
     Dosage: 40 MG, QAM
     Route: 048
  7. NORVASC [Concomitant]
     Indication: DRUG USE FOR UNKNOWN INDICATION
     Dosage: 7.5 MG, BID
     Route: 048
  8. ZOLOFT [Concomitant]
     Indication: DRUG USE FOR UNKNOWN INDICATION
     Dosage: 37.5 MG, QAM
     Route: 048

REACTIONS (1)
  - LEFT VENTRICULAR HYPERTROPHY [None]
